FAERS Safety Report 18625443 (Version 1)
Quarter: 2020Q4

REPORT INFORMATION
  Report Type: Spontaneous
  Country: CN (occurrence: CN)
  Receive Date: 20201217
  Receipt Date: 20201217
  Transmission Date: 20210114
  Serious: Yes (Other)
  Sender: FDA-Public Use
  Company Number: CN-ROCHE-2733362

PATIENT
  Age: 63 Year
  Sex: Male
  Weight: 52 kg

DRUGS (9)
  1. IRINOTECAN HYDROCHLORIDE. [Suspect]
     Active Substance: IRINOTECAN HYDROCHLORIDE
     Indication: TUMOUR ULCERATION
     Route: 041
     Dates: start: 20201102
  2. IRINOTECAN HYDROCHLORIDE. [Suspect]
     Active Substance: IRINOTECAN HYDROCHLORIDE
     Route: 041
     Dates: start: 20201117
  3. AVASTIN [Suspect]
     Active Substance: BEVACIZUMAB
     Indication: TUMOUR ULCERATION
     Route: 041
     Dates: start: 20201102
  4. SODIUM CHLORIDE IV [Suspect]
     Active Substance: SODIUM CHLORIDE
     Dosage: SOLVENT FOR IRINOTECAN HYDROCHLORIDE INJECTION
     Route: 041
     Dates: start: 20201102
  5. POLYENE PHOSPHATIDYLCHOLINE [Concomitant]
     Active Substance: PHOSPHOLIPID
     Dosage: 2 CAPSULES ORAL THREE TIMES PER DAY
     Route: 048
  6. RALTITREXED [Suspect]
     Active Substance: RALTITREXED
     Indication: TUMOUR ULCERATION
     Route: 041
     Dates: start: 20201102
  7. COMPOUND GLYCYRRHIZIN (UNK INGREDIENTS) [Concomitant]
     Dosage: 2 TABLETS ORAL THREE TIMES PER DAY
     Route: 048
  8. SODIUM CHLORIDE IV [Suspect]
     Active Substance: SODIUM CHLORIDE
     Dosage: SOLVENT FOR RALTITREXED FOR INJECTION
     Route: 041
     Dates: start: 20201102
  9. SODIUM CHLORIDE IV [Suspect]
     Active Substance: SODIUM CHLORIDE
     Indication: PRODUCT USED FOR UNKNOWN INDICATION
     Dosage: SOLVENT FOR BEVACIZUMAB
     Route: 041
     Dates: start: 20201102

REACTIONS (1)
  - Transaminases increased [Recovering/Resolving]

NARRATIVE: CASE EVENT DATE: 20201111
